FAERS Safety Report 9473331 (Version 1)
Quarter: 2013Q3

REPORT INFORMATION
  Report Type: Spontaneous
  Country: US (occurrence: US)
  Receive Date: 20130823
  Receipt Date: 20130823
  Transmission Date: 20140515
  Serious: No
  Sender: FDA-Public Use
  Company Number: US-BRISTOL-MYERS SQUIBB COMPANY-18896472

PATIENT
  Age: 63 Year
  Sex: Female

DRUGS (8)
  1. SPRYCEL [Suspect]
     Indication: CHRONIC MYELOID LEUKAEMIA
     Dosage: RESTART WITH 70MG TABS DAILY
     Route: 048
  2. ACYCLOVIR [Suspect]
  3. CIPROFLOXACIN [Suspect]
  4. FLUCONAZOLE [Suspect]
  5. LISINOPRIL [Suspect]
  6. PANTOPRAZOLE [Suspect]
  7. TAMOXIFEN [Suspect]
  8. ERGOCALCIFEROL [Suspect]

REACTIONS (1)
  - Rash [Recovered/Resolved]
